FAERS Safety Report 8200569-5 (Version None)
Quarter: 2012Q1

REPORT INFORMATION
  Report Type: 
  Country: None (occurrence: None)
  Receive Date: 20120305
  Receipt Date: 20120223
  Transmission Date: 20120608
  Serious: Yes (Hospitalization)
  Sender: FDA-Public Use
  Company Number: 2011030369

PATIENT
  Age: 70 Year
  Sex: Female
  Weight: 77.1115 kg

DRUGS (34)
  1. HIZENTRA [Suspect]
  2. LIPITOR [Concomitant]
  3. GLIPIZIDE [Concomitant]
  4. FOLIC ACID [Concomitant]
  5. PREVACID [Concomitant]
  6. FISH OIL (FISH OIL) [Concomitant]
  7. ENBREL [Concomitant]
  8. VITAMIN B (VITAMIN B) [Concomitant]
  9. ASCORBIC ACID [Concomitant]
  10. HIZENTRA [Suspect]
     Indication: COMBINED IMMUNODEFICIENCY
     Dosage: SEE IMAGE
     Route: 058
     Dates: start: 20111215, end: 20111215
  11. HIZENTRA [Suspect]
     Indication: COMBINED IMMUNODEFICIENCY
     Dosage: SEE IMAGE
     Route: 058
     Dates: start: 20111026
  12. HIZENTRA [Suspect]
     Indication: COMBINED IMMUNODEFICIENCY
     Dosage: SEE IMAGE
     Route: 058
     Dates: start: 20111116, end: 20111116
  13. HIZENTRA [Suspect]
     Indication: COMBINED IMMUNODEFICIENCY
     Dosage: SEE IMAGE
     Route: 058
     Dates: start: 20111025
  14. HIZENTRA [Suspect]
     Indication: COMBINED IMMUNODEFICIENCY
     Dosage: SEE IMAGE
     Route: 058
     Dates: start: 20111207
  15. HIZENTRA [Suspect]
  16. ATENOLOL [Concomitant]
  17. THEOPHYLLINE [Concomitant]
  18. ARAVA [Concomitant]
  19. XOLAIR [Concomitant]
  20. VITAMIN D [Concomitant]
  21. NASONEX [Concomitant]
  22. MULTIVITAMIN (MULTIVITAMIN /00831701) [Concomitant]
  23. HIZENTRA [Suspect]
  24. POTASSIUM CHLORIDE [Concomitant]
  25. CELEXA [Concomitant]
  26. LASIX [Concomitant]
  27. ZESTRIL [Concomitant]
  28. PLAVIX [Concomitant]
  29. PRO-AIR (PROCATEROL HYDROCHLORIDE) [Concomitant]
  30. LOVAZA (OMEGA-3 FATTY ACIDS) [Concomitant]
  31. HIZENTRA [Suspect]
  32. ADVAIR DISKUS 100/50 [Concomitant]
  33. ATIVAN [Concomitant]
  34. ALBUTEROL [Concomitant]

REACTIONS (5)
  - OEDEMA [None]
  - INFUSION SITE SWELLING [None]
  - BRONCHITIS [None]
  - CARDIAC FAILURE CONGESTIVE [None]
  - PAIN [None]
